FAERS Safety Report 7400461-X (Version None)
Quarter: 2011Q2

REPORT INFORMATION
  Report Type: 
  Country: None (occurrence: None)
  Receive Date: 20110407
  Receipt Date: 20110407
  Transmission Date: 20111010
  Serious: Yes (Hospitalization)
  Sender: FDA-Public Use
  Company Number: US-PFIZER INC-2006008674

PATIENT
  Sex: Male
  Weight: 79 kg

DRUGS (1)
  1. SUNITINIB MALATE [Suspect]
     Indication: RENAL CELL CARCINOMA
     Dosage: 50 MG, 1X/DAY
     Route: 048
     Dates: start: 20060106, end: 20060518

REACTIONS (2)
  - CONFUSIONAL STATE [None]
  - BLOOD SODIUM DECREASED [None]
